FAERS Safety Report 4850021-X (Version None)
Quarter: 2005Q4

REPORT INFORMATION
  Report Type: 
  Country: None (occurrence: None)
  Receive Date: 20051102
  Receipt Date: 20050708
  Transmission Date: 20060501
  Serious: No
  Sender: FDA-Public Use
  Company Number: 200511363BWH

PATIENT
  Sex: Male

DRUGS (2)
  1. LEVITRA [Suspect]
  2. CARDURA [Concomitant]

REACTIONS (2)
  - DIZZINESS [None]
  - FALL [None]
